FAERS Safety Report 7246861-2 (Version None)
Quarter: 2011Q1

REPORT INFORMATION
  Report Type: 
  Country: None (occurrence: None)
  Receive Date: 20110127
  Receipt Date: 20110113
  Transmission Date: 20110831
  Serious: Yes (Other)
  Sender: FDA-Public Use
  Company Number: PHHY2011DE05161

PATIENT
  Sex: Female
  Weight: 63 kg

DRUGS (7)
  1. RAMIPRIL [Concomitant]
     Dosage: UNK
     Dates: start: 20070301
  2. BELOC ZOK [Concomitant]
     Dosage: UNK
     Dates: start: 20070301
  3. HYDROCHLOROTHIAZIDE [Suspect]
     Indication: HYPERTENSION
     Dosage: 12.5 MG, QD
     Route: 048
     Dates: start: 20070401
  4. NO TREATMENT RECEIVED [Suspect]
     Dosage: UNK
  5. PANTOPRAZOLE [Concomitant]
     Dosage: UNK
     Dates: start: 20080901
  6. MULTAQ [Concomitant]
     Dosage: UNK
     Dates: start: 20100101, end: 20101201
  7. COUMADIN [Concomitant]
     Dosage: UNK
     Dates: start: 20070301

REACTIONS (2)
  - CARDIOMYOPATHY [None]
  - NON-HODGKIN'S LYMPHOMA [None]
